FAERS Safety Report 18414224 (Version 3)
Quarter: 2025Q3

REPORT INFORMATION
  Report Type: Report from Study
  Country: CA (occurrence: CA)
  Receive Date: 20201022
  Receipt Date: 20250809
  Transmission Date: 20251021
  Serious: Yes (Other)
  Sender: ALEXION PHARMACEUTICALS
  Company Number: 2020SF34209

PATIENT
  Age: 54 Year
  Sex: Female

DRUGS (10)
  1. SYMBICORT [Suspect]
     Active Substance: BUDESONIDE\FORMOTEROL FUMARATE DIHYDRATE
     Dosage: 2 DF TWO TIMES A DAY
  2. RHINOCORT [Suspect]
     Active Substance: BUDESONIDE
     Dosage: 2 DOSAGE FORM, BID
  3. DYMISTA [Suspect]
     Active Substance: AZELASTINE HYDROCHLORIDE\FLUTICASONE PROPIONATE
     Indication: Product used for unknown indication
     Dosage: 1 DOSAGE FORM, BID
  4. ZENHALE [Suspect]
     Active Substance: FORMOTEROL FUMARATE\MOMETASONE FUROATE
     Indication: Product used for unknown indication
     Dosage: 2 DOSAGE FORM, BID
     Route: 065
  5. LEVOTHYROXINE [Suspect]
     Active Substance: LEVOTHYROXINE
     Indication: Product used for unknown indication
     Dosage: .125 MILLIGRAM, QD
  6. NASONEX [Suspect]
     Active Substance: MOMETASONE FUROATE
     Indication: Product used for unknown indication
     Dosage: UNK UNK, QD
     Route: 065
  7. PREDNISONE [Suspect]
     Active Substance: PREDNISONE
     Indication: Product used for unknown indication
     Route: 065
  8. ALBUTEROL SULFATE [Suspect]
     Active Substance: ALBUTEROL SULFATE
     Indication: Product used for unknown indication
     Route: 065
  9. BREO ELLIPTA [Suspect]
     Active Substance: FLUTICASONE FUROATE\VILANTEROL TRIFENATATE
  10. NUCALA [Concomitant]
     Active Substance: MEPOLIZUMAB

REACTIONS (16)
  - Middle insomnia [Unknown]
  - Cough [Unknown]
  - Asthma [Unknown]
  - Full blood count abnormal [Unknown]
  - Dysplasia [Unknown]
  - Dyspnoea [Unknown]
  - Eosinophilia [Unknown]
  - Nasal obstruction [Unknown]
  - Neutropenia [Unknown]
  - Obstructive airways disorder [Unknown]
  - Sinus congestion [Unknown]
  - Sinusitis [Unknown]
  - Upper-airway cough syndrome [Unknown]
  - Vasodilatation [Unknown]
  - Wheezing [Unknown]
  - Therapeutic product effect incomplete [Unknown]
